FAERS Safety Report 12649471 (Version 1)
Quarter: 2016Q3

REPORT INFORMATION
  Report Type: Spontaneous
  Country: US (occurrence: US)
  Receive Date: 20160812
  Receipt Date: 20160812
  Transmission Date: 20161109
  Serious: Yes (Death, Hospitalization)
  Sender: FDA-Public Use
  Company Number: US-SA-2016SA148181

PATIENT
  Age: 51 Year
  Sex: Male
  Weight: 79.5 kg

DRUGS (4)
  1. FLUDARA [Suspect]
     Active Substance: FLUDARABINE PHOSPHATE
     Indication: NEOPLASM MALIGNANT
     Route: 065
     Dates: start: 20150305, end: 20150308
  2. FLUDARABINE [Concomitant]
     Active Substance: FLUDARABINE PHOSPHATE
     Route: 042
     Dates: start: 20150305, end: 20150308
  3. BUSULFAN [Concomitant]
     Route: 042
     Dates: start: 20150305, end: 20150308
  4. CLOFARABINE [Concomitant]
     Active Substance: CLOFARABINE
     Route: 042
     Dates: start: 2015, end: 20150308

REACTIONS (11)
  - Diarrhoea haemorrhagic [Fatal]
  - Encephalopathy [Fatal]
  - Diarrhoea [Unknown]
  - Disseminated intravascular coagulation [Fatal]
  - Human herpesvirus 6 infection [Unknown]
  - Hepatic failure [Fatal]
  - BK virus infection [Unknown]
  - Pyrexia [Unknown]
  - Haematuria [Fatal]
  - Hepatic neoplasm [Unknown]
  - Viral infection [Unknown]

NARRATIVE: CASE EVENT DATE: 20150511
